FAERS Safety Report 15946528 (Version 2)
Quarter: 2019Q1

REPORT INFORMATION
  Report Type: Spontaneous
  Country: US (occurrence: US)
  Receive Date: 20190211
  Receipt Date: 20190319
  Transmission Date: 20190417
  Serious: Yes (Hospitalization, Other)
  Sender: FDA-Public Use
  Company Number: US-ASTRAZENECA-2018SF14682

PATIENT
  Age: 26355 Day
  Sex: Female

DRUGS (24)
  1. ASACOL [Concomitant]
     Active Substance: MESALAMINE
     Dates: start: 20170512
  2. ADVAIR HFA [Concomitant]
     Active Substance: FLUTICASONE PROPIONATE\SALMETEROL XINAFOATE
  3. TRAMADOL. [Concomitant]
     Active Substance: TRAMADOL
  4. TORSEMIDE. [Concomitant]
     Active Substance: TORSEMIDE
  5. LEVOTHYROXINE. [Concomitant]
     Active Substance: LEVOTHYROXINE
  6. CYCLOBENZAPRINE. [Concomitant]
     Active Substance: CYCLOBENZAPRINE
  7. GLIPIZIDE. [Concomitant]
     Active Substance: GLIPIZIDE
     Dates: start: 20170512
  8. LEVAQUIN [Concomitant]
     Active Substance: LEVOFLOXACIN
     Dates: start: 20170508
  9. PROTONIX [Concomitant]
     Active Substance: PANTOPRAZOLE SODIUM
     Route: 048
     Dates: start: 20170719
  10. ASPIRIN. [Concomitant]
     Active Substance: ASPIRIN
     Dates: start: 20170512
  11. CLINDAMYCIN. [Concomitant]
     Active Substance: CLINDAMYCIN
     Dates: start: 20170512
  12. ATORVASTATIN [Concomitant]
     Active Substance: ATORVASTATIN
     Dates: start: 20170510
  13. COREG [Concomitant]
     Active Substance: CARVEDILOL
  14. NEXIUM [Suspect]
     Active Substance: ESOMEPRAZOLE MAGNESIUM
     Route: 048
     Dates: start: 20070722, end: 20170917
  15. LASIX [Concomitant]
     Active Substance: FUROSEMIDE
     Dates: start: 20170508
  16. ACETAMINOPHEN. [Concomitant]
     Active Substance: ACETAMINOPHEN
     Dates: start: 20170508
  17. IBUPROFEN. [Concomitant]
     Active Substance: IBUPROFEN
  18. NEXIUM [Suspect]
     Active Substance: ESOMEPRAZOLE MAGNESIUM
     Route: 048
     Dates: start: 20070722
  19. LISINOPRIL. [Concomitant]
     Active Substance: LISINOPRIL
     Dates: start: 20170512
  20. JANUVIA [Concomitant]
     Active Substance: SITAGLIPTIN PHOSPHATE
     Dates: start: 20170512
  21. NITROGLYCERIN. [Concomitant]
     Active Substance: NITROGLYCERIN
     Dates: start: 20170508
  22. EZETIMIBE. [Concomitant]
     Active Substance: EZETIMIBE
     Dates: start: 20170905
  23. SINGULAIR [Concomitant]
     Active Substance: MONTELUKAST SODIUM
     Dates: start: 20170512
  24. ALBUTEROL. [Concomitant]
     Active Substance: ALBUTEROL
     Dates: start: 20170512

REACTIONS (2)
  - Renal injury [Unknown]
  - Chronic kidney disease [Unknown]

NARRATIVE: CASE EVENT DATE: 20170831
